FAERS Safety Report 7216390-0 (Version None)
Quarter: 2011Q1

REPORT INFORMATION
  Report Type: 
  Country: None (occurrence: None)
  Receive Date: 20110105
  Receipt Date: 20110105
  Transmission Date: 20110831
  Serious: Yes (Death)
  Sender: FDA-Public Use
  Company Number: None

PATIENT
  Sex: Female
  Weight: 2.7 kg

DRUGS (4)
  1. FLUCONAZOLE [Suspect]
     Indication: FUNGAL INFECTION
     Dosage: 25M/KG IV WEEKLY
     Route: 042
     Dates: start: 20101214
  2. FLUCONAZOLE [Suspect]
     Indication: PROPHYLAXIS
     Dosage: 25M/KG IV WEEKLY
     Route: 042
     Dates: start: 20101214
  3. FLUCONAZOLE [Suspect]
     Indication: FUNGAL INFECTION
     Dosage: 25M/KG IV WEEKLY
     Route: 042
     Dates: start: 20101218
  4. FLUCONAZOLE [Suspect]
     Indication: PROPHYLAXIS
     Dosage: 25M/KG IV WEEKLY
     Route: 042
     Dates: start: 20101218

REACTIONS (10)
  - CONGENITAL PULMONARY VALVE ATRESIA [None]
  - OLIGURIA [None]
  - LOW CARDIAC OUTPUT SYNDROME [None]
  - REGURGITATION [None]
  - HYPOXIA [None]
  - RENAL IMPAIRMENT [None]
  - HYPOTENSION [None]
  - EBSTEIN'S ANOMALY [None]
  - JAUNDICE [None]
  - DISSEMINATED INTRAVASCULAR COAGULATION [None]
